FAERS Safety Report 15682579 (Version 2)
Quarter: 2018Q4

REPORT INFORMATION
  Report Type: Report from Study
  Country: US (occurrence: US)
  Receive Date: 20181203
  Receipt Date: 20181218
  Transmission Date: 20190205
  Serious: Yes (Hospitalization)
  Sender: FDA-Public Use
  Company Number: US-ACTELION-A-US2018-182502

PATIENT
  Age: 21 Year
  Sex: Female

DRUGS (4)
  1. TRACLEER [Suspect]
     Active Substance: BOSENTAN
     Indication: RAYNAUD^S PHENOMENON
     Dosage: 62.5 MG, BID
     Route: 048
     Dates: start: 201801
  2. ZOLOFT [Concomitant]
     Active Substance: SERTRALINE HYDROCHLORIDE
  3. ASPIRIN. [Concomitant]
     Active Substance: ASPIRIN
  4. ANAKINRA [Concomitant]
     Active Substance: ANAKINRA
     Dosage: 100 MG, QD
     Dates: start: 2016

REACTIONS (2)
  - Pain [Recovered/Resolved]
  - Paronychia [Recovered/Resolved]

NARRATIVE: CASE EVENT DATE: 20181112
